FAERS Safety Report 6370088-X (Version None)
Quarter: 2009Q3

REPORT INFORMATION
  Report Type: 
  Country: None (occurrence: None)
  Receive Date: 20090923
  Receipt Date: 20070504
  Transmission Date: 20100115
  Serious: Yes (Hospitalization, Disabling)
  Sender: FDA-Public Use
  Company Number: US-ASTRAZENECA-2006UW22279

PATIENT
  Age: 16367 Day
  Sex: Male
  Weight: 60.3 kg

DRUGS (13)
  1. SEROQUEL [Suspect]
     Indication: BIPOLAR DISORDER
     Route: 048
     Dates: start: 20030101
  2. SEROQUEL [Suspect]
     Indication: PSYCHOTIC DISORDER
     Route: 048
     Dates: start: 20030101
  3. SEROQUEL [Suspect]
     Dosage: 100 MG TO 400 MG
     Route: 048
     Dates: start: 20050912
  4. SEROQUEL [Suspect]
     Dosage: 100 MG TO 400 MG
     Route: 048
     Dates: start: 20050912
  5. LIPITOR [Concomitant]
     Dates: start: 20050721
  6. PAXIL CR [Concomitant]
     Dates: start: 20050912
  7. LAMICTAL [Concomitant]
     Dosage: 25 MG TO 100 MG
     Dates: start: 20050912
  8. PROZAC [Concomitant]
     Indication: DEPRESSION
     Dates: start: 20060812
  9. NEURONTIN [Concomitant]
     Dosage: 100 MG TO 900 MG
     Dates: start: 20051013
  10. VICODIN ES [Concomitant]
     Dosage: TID
  11. ABILIFY [Concomitant]
     Indication: PSYCHOTIC DISORDER
     Dates: start: 20060821
  12. CYMBALTA [Concomitant]
     Indication: DEPRESSION
     Dates: start: 20060821
  13. BENADRYL [Concomitant]
     Indication: EXTRAPYRAMIDAL DISORDER
     Dates: start: 20060821

REACTIONS (4)
  - DIABETES MELLITUS [None]
  - DIABETIC KETOACIDOSIS [None]
  - DIABETIC NEUROPATHY [None]
  - HYPERGLYCAEMIA [None]
